FAERS Safety Report 6554087-0 (Version None)
Quarter: 2010Q1

REPORT INFORMATION
  Report Type: 
  Country: None (occurrence: None)
  Receive Date: 20100127
  Receipt Date: 20100115
  Transmission Date: 20100710
  Serious: Yes (Other)
  Sender: FDA-Public Use
  Company Number: GB-ELI_LILLY_AND_COMPANY-GB201001003119

PATIENT
  Age: 56 Year
  Sex: Male
  Weight: 103 kg

DRUGS (2)
  1. CYMBALTA [Suspect]
     Dates: start: 20080810
  2. PROVIGIL [Concomitant]
     Indication: DEPRESSION
     Dosage: 200 MG, UNK
     Route: 048
     Dates: start: 20090510

REACTIONS (2)
  - DRUG INTERACTION [None]
  - SALIVARY HYPERSECRETION [None]
